FAERS Safety Report 7416785-6 (Version None)
Quarter: 2011Q2

REPORT INFORMATION
  Report Type: 
  Country: None (occurrence: None)
  Receive Date: 20110415
  Receipt Date: 20100211
  Transmission Date: 20111010
  Serious: No
  Sender: FDA-Public Use
  Company Number: 2010BI005067

PATIENT
  Sex: Female

DRUGS (3)
  1. AVONEX [Concomitant]
     Indication: MULTIPLE SCLEROSIS
     Route: 030
     Dates: start: 20050301
  2. TYSABRI [Suspect]
     Route: 042
     Dates: start: 20100303
  3. TYSABRI [Suspect]
     Indication: MULTIPLE SCLEROSIS
     Route: 042
     Dates: start: 20070824, end: 20090112

REACTIONS (6)
  - DRUG INEFFECTIVE [None]
  - TREMOR [None]
  - INTENTION TREMOR [None]
  - MUSCLE SPASMS [None]
  - INFLUENZA [None]
  - GAIT DISTURBANCE [None]
